FAERS Safety Report 9147229 (Version 4)
Quarter: 2013Q2

REPORT INFORMATION
  Report Type: Report from Study
  Country: FR (occurrence: FR)
  Receive Date: 20130307
  Receipt Date: 20130510
  Transmission Date: 20140414
  Serious: Yes (Hospitalization)
  Sender: FDA-Public Use
  Company Number: FR-GLAXOSMITHKLINE-B0763075C

PATIENT
  Age: 82 Year
  Sex: Male

DRUGS (2)
  1. OFATUMUMAB [Suspect]
     Indication: B-CELL LYMPHOMA
     Dosage: 1000MG CYCLIC
     Route: 042
     Dates: start: 20110719
  2. CHOP [Suspect]
     Indication: B-CELL LYMPHOMA
     Route: 065
     Dates: start: 20110719

REACTIONS (2)
  - Renal failure [Recovered/Resolved]
  - Prostatitis [Recovered/Resolved]
